FAERS Safety Report 8117968-2 (Version None)
Quarter: 2012Q1

REPORT INFORMATION
  Report Type: 
  Country: None (occurrence: None)
  Receive Date: 20120201
  Receipt Date: 20120123
  Transmission Date: 20120608
  Serious: Yes (Hospitalization)
  Sender: FDA-Public Use
  Company Number: 1172194

PATIENT
  Age: 51 Year
  Sex: Female
  Weight: 35.8342 kg

DRUGS (2)
  1. ONDANSETRON [Concomitant]
  2. DOCETAXEL [Suspect]
     Indication: BREAST CANCER
     Dosage: 140 MG MILLIGRAM(S), INTRAVENOUS
     Route: 042
     Dates: start: 20111228, end: 20120118

REACTIONS (3)
  - ARTHRALGIA [None]
  - NEUTROPENIC SEPSIS [None]
  - DIARRHOEA [None]
